FAERS Safety Report 14555968 (Version 1)
Quarter: 2018Q1

REPORT INFORMATION
  Report Type: Spontaneous
  Country: ES (occurrence: ES)
  Receive Date: 20180221
  Receipt Date: 20180221
  Transmission Date: 20180509
  Serious: Yes (Other)
  Sender: FDA-Public Use
  Company Number: ES-SUN PHARMACEUTICAL INDUSTRIES LTD-2018RR-163925

PATIENT
  Age: 92 Year
  Sex: Female

DRUGS (7)
  1. DIGOXINA (770A) [Concomitant]
     Indication: PRODUCT USED FOR UNKNOWN INDICATION
     Dosage: 0,125 CADA 24 HORAS ()
     Route: 065
     Dates: start: 20170126, end: 20170131
  2. PANTOPRAZOL [Suspect]
     Active Substance: PANTOPRAZOLE SODIUM
     Indication: PRODUCT USED FOR UNKNOWN INDICATION
     Dosage: 40 MG CADA 24 HORAS CON REDUCCION POSTERIOR DE LA DOSIS A 20 MG CADA 24 HORAS EL 26/01/2017 ()
     Route: 065
     Dates: start: 20170125, end: 20170216
  3. AMBROXOL (453A) [Concomitant]
     Indication: PRODUCT USED FOR UNKNOWN INDICATION
     Dosage: 15 MG CADA 8 HORAS ()
     Route: 065
     Dates: start: 20170125, end: 20170217
  4. PARACETAMOL (12A) [Concomitant]
     Active Substance: ACETAMINOPHEN
     Indication: PRODUCT USED FOR UNKNOWN INDICATION
     Dosage: 1 GR CADA 8 HORAS ()
     Route: 065
     Dates: start: 20170125, end: 20170218
  5. LORAZEPAM (1864A) [Concomitant]
     Indication: PRODUCT USED FOR UNKNOWN INDICATION
     Dosage: 1 MG CADA 24 HORAS ()
     Route: 065
     Dates: start: 20170125, end: 20170217
  6. AMOXICILLIN/CLAVULANIC ACID [Interacting]
     Active Substance: AMOXICILLIN\CLAVULANIC ACID
     Indication: PNEUMONIA
     Dosage: 1 GR CADA 8 HORAS CON DESCENSO POSTERIOR DE DOSIS A 875 GR CADA 8 HORAS EL 30/01/2017
     Route: 042
     Dates: start: 20170125, end: 20170208
  7. ACENOCUMAROL [Interacting]
     Active Substance: ACENOCOUMAROL
     Indication: ATRIAL FIBRILLATION
     Dosage: 0,25 MG CADA 24 HORAS CON AUMENTO POSTERIOR A 0,5 MG CADA 24 HORAS EL 26/01/2017
     Route: 048
     Dates: start: 20040917, end: 20170127

REACTIONS (1)
  - Hypocoagulable state [Recovered/Resolved]

NARRATIVE: CASE EVENT DATE: 20170127
